FAERS Safety Report 4651783-7 (Version None)
Quarter: 2005Q2

REPORT INFORMATION
  Report Type: 
  Country: None (occurrence: None)
  Receive Date: 20050504
  Receipt Date: 20050422
  Transmission Date: 20051028
  Serious: Yes (Hospitalization)
  Sender: FDA-Public Use
  Company Number: US-JNJFOC-20040909911

PATIENT
  Sex: Male

DRUGS (26)
  1. INFLIXIMAB [Suspect]
     Route: 042
  2. INFLIXIMAB [Suspect]
     Route: 042
  3. INFLIXIMAB [Suspect]
     Route: 042
  4. INFLIXIMAB [Suspect]
     Route: 042
  5. INFLIXIMAB [Suspect]
     Route: 042
  6. INFLIXIMAB [Suspect]
     Route: 042
  7. INFLIXIMAB [Suspect]
     Route: 042
  8. INFLIXIMAB [Suspect]
     Indication: RHEUMATOID ARTHRITIS
     Route: 042
  9. FLOMAX [Concomitant]
  10. ALLOPURINOL [Concomitant]
  11. LEXAPRO [Concomitant]
  12. LORCET-HD [Concomitant]
  13. LORCET-HD [Concomitant]
     Dosage: 10/650 MG
  14. GLUCOTROL XL [Concomitant]
  15. NEXIUM [Concomitant]
  16. COLACE [Concomitant]
  17. XANAX [Concomitant]
  18. ANTIVERT [Concomitant]
  19. ANTIVERT [Concomitant]
  20. TOPROL-XL [Concomitant]
  21. LASIX [Concomitant]
     Dosage: AM
  22. QUINERVA [Concomitant]
  23. LANOXIN [Concomitant]
  24. ASPIRIN [Concomitant]
     Route: 049
  25. COUMADIN [Concomitant]
  26. ALBUTEROL [Concomitant]

REACTIONS (1)
  - CHRONIC OBSTRUCTIVE AIRWAYS DISEASE EXACERBATED [None]
